FAERS Safety Report 8778472 (Version 7)
Quarter: 2012Q4

REPORT INFORMATION
  Report Type: 
  Country: GB (occurrence: GB)
  Receive Date: 20120912
  Receipt Date: 20121226
  Transmission Date: 20130627
  Serious: Yes (Other)
  Sender: FDA-Public Use
  Company Number: GB-VERTEX PHARMACEUTICAL INC.-2012-021060

PATIENT
  Age: 55 None
  Sex: Female

DRUGS (4)
  1. VX-950 (TELAPREVIR) [Suspect]
     Indication: HEPATITIS C
     Dosage: 750 mg, tid
     Route: 048
     Dates: start: 20120803
  2. RIBAVIRIN [Suspect]
     Indication: HEPATITIS C
     Dosage: Dosage Form: Unspecified
     Route: 048
     Dates: start: 20120706
  3. RIBAVIRIN [Suspect]
     Dosage: UNK
     Route: 048
  4. PEG INTERFERON [Suspect]
     Indication: HEPATITIS C
     Dosage: UNK UNK, qw
     Route: 058

REACTIONS (12)
  - Lethargy [Not Recovered/Not Resolved]
  - Melanocytic naevus [Not Recovered/Not Resolved]
  - Depression [Not Recovered/Not Resolved]
  - Proctalgia [Not Recovered/Not Resolved]
  - Anaemia [Unknown]
  - Anaemia [Unknown]
  - Dry skin [Not Recovered/Not Resolved]
  - Pruritus [Not Recovered/Not Resolved]
  - Nausea [Not Recovered/Not Resolved]
  - Vomiting [Unknown]
  - Anorectal discomfort [Not Recovered/Not Resolved]
  - Rash [Unknown]
